FAERS Safety Report 7600529-9 (Version None)
Quarter: 2011Q3

REPORT INFORMATION
  Report Type: 
  Country: None (occurrence: None)
  Receive Date: 20110711
  Receipt Date: 20110629
  Transmission Date: 20111222
  Serious: Yes (Other)
  Sender: FDA-Public Use
  Company Number: US-ROCHE-770710

PATIENT
  Sex: Female

DRUGS (4)
  1. PREDNISOLONE [Concomitant]
     Indication: RHEUMATOID ARTHRITIS
     Route: 048
  2. ACTEMRA [Suspect]
     Indication: RHEUMATOID ARTHRITIS
     Dosage: FORM: INFUSION
     Route: 042
     Dates: start: 20110125, end: 20110223
  3. ACTEMRA [Suspect]
     Dosage: SECOND INFUSION FORM: INFUSION
     Route: 042
     Dates: start: 20110328
  4. METHOTREXATE [Concomitant]
     Indication: RHEUMATOID ARTHRITIS
     Dosage: 15 MG ONE PER WEEK
     Route: 048

REACTIONS (7)
  - GENERALISED OEDEMA [None]
  - DYSPNOEA [None]
  - ASTHENIA [None]
  - PAIN [None]
  - SWELLING [None]
  - LOSS OF CONSCIOUSNESS [None]
  - EYE SWELLING [None]
